FAERS Safety Report 5737238-7 (Version None)
Quarter: 2008Q2

REPORT INFORMATION
  Report Type: 
  Country: None (occurrence: None)
  Receive Date: 20080514
  Receipt Date: 20080507
  Transmission Date: 20081010
  Serious: Yes (Other)
  Sender: FDA-Public Use
  Company Number: PHEH2008US04435

PATIENT
  Sex: Female

DRUGS (4)
  1. STALEVO 100 [Suspect]
     Indication: PARKINSON'S DISEASE
     Dosage: 100 MG, QID
     Route: 048
     Dates: start: 20080401
  2. STALEVO 100 [Suspect]
     Dosage: 100 MG, TID
     Route: 048
  3. SELEGILINE HCL [Concomitant]
     Indication: PARKINSON'S DISEASE
  4. OMEPRAZOLE [Concomitant]
     Indication: GASTRIC DISORDER

REACTIONS (2)
  - AMNESIA [None]
  - BLEPHAROSPASM [None]
